FAERS Safety Report 5238432-4 (Version None)
Quarter: 2007Q1

REPORT INFORMATION
  Report Type: 
  Country: None (occurrence: None)
  Receive Date: 20070215
  Receipt Date: 20070205
  Transmission Date: 20070707
  Serious: Yes (Hospitalization, Other)
  Sender: FDA-Public Use
  Company Number: JP-JNJFOC-20070201868

PATIENT
  Sex: Female
  Weight: 52 kg

DRUGS (18)
  1. REMICADE [Suspect]
     Route: 042
  2. REMICADE [Suspect]
     Dosage: 13 INFUSIONS ON UNSPECIFIED DATES (INFUSIONS 6-18).
     Route: 042
  3. REMICADE [Suspect]
     Route: 042
  4. REMICADE [Suspect]
     Route: 042
  5. REMICADE [Suspect]
     Route: 042
  6. REMICADE [Suspect]
     Route: 042
  7. REMICADE [Suspect]
     Indication: RHEUMATOID ARTHRITIS
     Route: 042
  8. RHEUMATREX [Suspect]
     Route: 048
  9. RHEUMATREX [Suspect]
     Indication: RHEUMATOID ARTHRITIS
     Route: 048
  10. PREDNISOLONE [Concomitant]
     Indication: RHEUMATOID ARTHRITIS
     Route: 048
  11. RINDERON [Concomitant]
     Indication: RHEUMATOID ARTHRITIS
     Route: 030
  12. VOLTAREN [Concomitant]
     Indication: RHEUMATOID ARTHRITIS
     Route: 048
  13. INDOMETHACIN [Concomitant]
     Indication: RHEUMATOID ARTHRITIS
     Route: 054
  14. ADOFEED [Concomitant]
     Indication: RHEUMATOID ARTHRITIS
  15. OMNICAIN [Concomitant]
     Route: 030
  16. GASTER [Concomitant]
     Indication: GASTRITIS PROPHYLAXIS
     Route: 048
  17. MARZULENE-S [Concomitant]
     Indication: GASTRITIS PROPHYLAXIS
     Route: 048
  18. JUVELA NICOTINATE [Concomitant]
     Indication: POOR PERIPHERAL CIRCULATION
     Route: 048

REACTIONS (1)
  - PANCREATIC CARCINOMA [None]
